FAERS Safety Report 7728944-3 (Version None)
Quarter: 2011Q3

REPORT INFORMATION
  Report Type: 
  Country: None (occurrence: None)
  Receive Date: 20110906
  Receipt Date: 20110831
  Transmission Date: 20111222
  Serious: Yes (Other)
  Sender: FDA-Public Use
  Company Number: CA-ROXANE LABORATORIES, INC.-2011-RO-01203RO

PATIENT
  Age: 79 Year
  Sex: Female

DRUGS (1)
  1. PILOCARPINE [Suspect]
     Route: 031

REACTIONS (2)
  - SPUTUM ABNORMAL [None]
  - WHEEZING [None]
